FAERS Safety Report 7119124-3 (Version None)
Quarter: 2010Q4

REPORT INFORMATION
  Report Type: 
  Country: None (occurrence: None)
  Receive Date: 20101123
  Receipt Date: 20091015
  Transmission Date: 20110411
  Serious: No
  Sender: FDA-Public Use
  Company Number: US-MYLANLABS-2009S1018091

PATIENT
  Age: 81 Year
  Sex: Female

DRUGS (7)
  1. PLAVIX [Suspect]
     Indication: HYPERTENSION
     Route: 048
     Dates: start: 20090701, end: 20090901
  2. PLAVIX [Suspect]
     Indication: TRANSIENT ISCHAEMIC ATTACK
     Route: 048
     Dates: start: 20090701, end: 20090901
  3. TOPROL-XL [Suspect]
  4. AMLODIPINE BESYLATE [Suspect]
     Indication: BLOOD PRESSURE INCREASED
     Route: 048
     Dates: start: 20081001
  5. AMLODIPINE BESYLATE [Suspect]
     Indication: TRANSIENT ISCHAEMIC ATTACK
     Route: 048
     Dates: start: 20081001
  6. VITAMIN B6 [Suspect]
     Dates: end: 20090101
  7. VITAMIN B-12 [Suspect]
     Dates: end: 20090101

REACTIONS (1)
  - ERYTHEMA [None]
